FAERS Safety Report 7402604-0 (Version None)
Quarter: 2011Q2

REPORT INFORMATION
  Report Type: 
  Country: None (occurrence: None)
  Receive Date: 20110408
  Receipt Date: 20110329
  Transmission Date: 20111010
  Serious: Yes (Hospitalization, Other)
  Sender: FDA-Public Use
  Company Number: US-SANOFI-AVENTIS-2011SA019240

PATIENT
  Age: 39 Year
  Sex: Male

DRUGS (6)
  1. SULFAMETHOXAZOLE + TRIMETHOPRIM [Suspect]
     Indication: PNEUMOCYSTIS JIROVECI INFECTION
     Dosage: TWO DOUBLE-STRENGTH TABLETS
     Route: 065
  2. CIPROFLOXACIN [Suspect]
     Route: 048
  3. IMIPENEM AND CILASTATIN SODIUM [Suspect]
     Route: 048
  4. AZITHROMYCIN [Concomitant]
     Route: 065
  5. VANCOMYCIN [Suspect]
     Route: 048
  6. RIFAMPICIN [Suspect]
     Route: 048

REACTIONS (5)
  - PYREXIA [None]
  - NEUTROPENIC COLITIS [None]
  - AGRANULOCYTOSIS [None]
  - NEUTROPHIL COUNT DECREASED [None]
  - MALAISE [None]
